FAERS Safety Report 17919306 (Version 2)
Quarter: 2021Q2

REPORT INFORMATION
  Report Type: Spontaneous
  Country: JP (occurrence: JP)
  Receive Date: 20200619
  Receipt Date: 20210416
  Transmission Date: 20210717
  Serious: Yes (Hospitalization, Other)
  Sender: FDA-Public Use
  Company Number: JP-BRISTOL-MYERS SQUIBB COMPANY-BMS-2019-098190

PATIENT
  Age: 75 Year
  Sex: Female
  Weight: 47 kg

DRUGS (14)
  1. LIXIANA OD [Concomitant]
     Active Substance: EDOXABAN TOSYLATE
     Indication: THROMBOSIS PROPHYLAXIS
     Dosage: 30 MILLIGRAM, QD
     Route: 048
     Dates: start: 20190821
  2. WATER FOR INJECTION [Concomitant]
     Active Substance: WATER
     Indication: INFECTION PROPHYLAXIS
     Dosage: 20 MILLILITER
     Route: 065
     Dates: start: 20191003
  3. TOARASET [Concomitant]
     Active Substance: ACETAMINOPHEN\TRAMADOL HYDROCHLORIDE
     Dosage: 1 DOSAGE FORM, TID
     Route: 048
     Dates: start: 20191003, end: 201910
  4. TOARASET [Concomitant]
     Active Substance: ACETAMINOPHEN\TRAMADOL HYDROCHLORIDE
     Dosage: 1 DOSAGE FORM, BID
     Route: 048
     Dates: start: 201910, end: 20191016
  5. CALONAL [Concomitant]
     Active Substance: ACETAMINOPHEN
     Indication: CANCER PAIN
     Dosage: UNK
     Route: 048
     Dates: start: 20190821
  6. PRAVASTATIN SODIUM. [Concomitant]
     Active Substance: PRAVASTATIN SODIUM
     Indication: PRODUCT USED FOR UNKNOWN INDICATION
     Dosage: 5 MILLIGRAM, QOD
     Route: 048
     Dates: start: 20190821
  7. OLOPATADINE HYDROCHLORIDE OD [Concomitant]
     Indication: PRODUCT USED FOR UNKNOWN INDICATION
     Dosage: 5 MILLIGRAM, BID
     Route: 048
     Dates: start: 20190918, end: 20191001
  8. MEPTIN AIR [Concomitant]
     Active Substance: PROCATEROL HYDROCHLORIDE
     Indication: PROPHYLAXIS
     Dosage: UNK
     Dates: start: 20191003
  9. OPDIVO [Suspect]
     Active Substance: NIVOLUMAB
     Indication: METASTATIC RENAL CELL CARCINOMA
     Dosage: 240 MILLIGRAM, ONE TIME DOSE
     Route: 041
     Dates: start: 20190823, end: 20190823
  10. BONALON [Concomitant]
     Active Substance: ALENDRONATE SODIUM
     Indication: INFECTION PROPHYLAXIS
     Dosage: UNK, QWK
     Route: 048
     Dates: start: 20191003
  11. TOARASET [Concomitant]
     Active Substance: ACETAMINOPHEN\TRAMADOL HYDROCHLORIDE
     Indication: CANCER PAIN
     Dosage: 1 DOSAGE FORM, QID
     Route: 048
     Dates: start: 20190821, end: 20191002
  12. YERVOY [Suspect]
     Active Substance: IPILIMUMAB
     Indication: METASTATIC RENAL CELL CARCINOMA
     Dosage: 47 MILLIGRAM, ONE TIME DOSE
     Route: 041
     Dates: start: 20190823, end: 20190823
  13. RINDERON V [Concomitant]
     Active Substance: BETAMETHASONE VALERATE
     Indication: PRODUCT USED FOR UNKNOWN INDICATION
     Dosage: SEVERAL TIMES A DAY
     Route: 062
     Dates: start: 20190824
  14. BENAMBAX [Concomitant]
     Active Substance: PENTAMIDINE
     Indication: INFECTION PROPHYLAXIS
     Dosage: 300 MILLIGRAM/KILOGRAM
     Dates: start: 20191003

REACTIONS (3)
  - Hepatic function abnormal [Recovering/Resolving]
  - Cholangitis [Unknown]
  - Rash [Not Recovered/Not Resolved]

NARRATIVE: CASE EVENT DATE: 20190918
